FAERS Safety Report 20511333 (Version 1)
Quarter: 2022Q1

REPORT INFORMATION
  Report Type: Spontaneous
  Country: US (occurrence: None)
  Receive Date: 20220223
  Receipt Date: 20220223
  Transmission Date: 20220423
  Serious: Yes (Hospitalization)
  Sender: FDA-Public Use
  Company Number: None

PATIENT
  Age: 72 Year
  Sex: Male
  Weight: 105.23 kg

DRUGS (7)
  1. TEMOZOLOMIDE [Suspect]
     Active Substance: TEMOZOLOMIDE
     Indication: Brain neoplasm malignant
     Dosage: OTHER FREQUENCY : QD X5DAYS;?
     Route: 048
     Dates: start: 20210902
  2. TEMOZOLOMIDE [Suspect]
     Active Substance: TEMOZOLOMIDE
     Indication: Brain neoplasm malignant
     Dosage: OTHER FREQUENCY : QDX5DAYS;?
     Route: 048
     Dates: start: 20211123
  3. PANTOPRAZOLE [Concomitant]
     Active Substance: PANTOPRAZOLE
  4. LEVETIRACETAM [Concomitant]
     Active Substance: LEVETIRACETAM
  5. BACTRIM DS [Concomitant]
     Active Substance: SULFAMETHOXAZOLE\TRIMETHOPRIM
  6. VITAMIN D [Concomitant]
     Active Substance: VITAMIN D NOS
  7. ONDANETRON [Concomitant]

REACTIONS (3)
  - Gait inability [None]
  - Fatigue [None]
  - Asthenia [None]
